FAERS Safety Report 17197341 (Version 2)
Quarter: 2019Q4

REPORT INFORMATION
  Report Type: Report from Study
  Country: US (occurrence: US)
  Receive Date: 20191224
  Receipt Date: 20191227
  Transmission Date: 20200122
  Serious: Yes (Hospitalization, Disabling)
  Sender: FDA-Public Use
  Company Number: US-ACTELION-A-US2019-199030

PATIENT
  Age: 60 Year
  Sex: Male
  Weight: 69.39 kg

DRUGS (5)
  1. UPTRAVI [Suspect]
     Active Substance: SELEXIPAG
     Dosage: 600 MCG, BID
     Route: 048
  2. UPTRAVI [Suspect]
     Active Substance: SELEXIPAG
     Indication: PULMONARY ARTERIAL HYPERTENSION
     Dosage: 1000 MCG, BID
     Route: 048
  3. LETAIRIS [Concomitant]
     Active Substance: AMBRISENTAN
     Dosage: 40 MG, QD
     Dates: start: 20190514
  4. TADALAFIL. [Concomitant]
     Active Substance: TADALAFIL
     Dosage: 10 MG, QD
  5. AMLODIPINE [Concomitant]
     Active Substance: AMLODIPINE BESYLATE

REACTIONS (10)
  - Disturbance in attention [Unknown]
  - Dizziness [Unknown]
  - Pneumonia [Unknown]
  - Headache [Unknown]
  - Abdominal pain [Recovered/Resolved]
  - Fluid retention [Unknown]
  - Diarrhoea [Recovered/Resolved]
  - Hepatic pain [Unknown]
  - End stage renal disease [Unknown]
  - Malaise [Unknown]

NARRATIVE: CASE EVENT DATE: 20191206
